FAERS Safety Report 5297515-3 (Version None)
Quarter: 2007Q2

REPORT INFORMATION
  Report Type: 
  Country: None (occurrence: None)
  Receive Date: 20070409
  Receipt Date: 20070326
  Transmission Date: 20071010
  Serious: Yes (Disabling, Other)
  Sender: FDA-Public Use
  Company Number: GXKR2007AU02901

PATIENT
  Age: 55 Year
  Sex: Male

DRUGS (3)
  1. CIPROFLOXACIN [Suspect]
     Indication: OSTEOMYELITIS CHRONIC
     Dosage: 1500 MG, QD, ORAL
     Route: 048
  2. OPIOID ANAESTHETICS (NO INGREDIENTS/SUBSTANCES) [Concomitant]
  3. CEPHALEXIN [Concomitant]

REACTIONS (9)
  - ANAEMIA MACROCYTIC [None]
  - CHROMATOPSIA [None]
  - COLOUR VISION TESTS ABNORMAL [None]
  - DIPLOPIA [None]
  - GAMMA-GLUTAMYLTRANSFERASE INCREASED [None]
  - OPTIC ATROPHY [None]
  - OPTIC NEUROPATHY [None]
  - SCOTOMA [None]
  - VISUAL ACUITY REDUCED [None]
